FAERS Safety Report 21795004 (Version 1)
Quarter: 2022Q4

REPORT INFORMATION
  Report Type: Spontaneous
  Country: US (occurrence: None)
  Receive Date: 20221228
  Receipt Date: 20221228
  Transmission Date: 20230112
  Serious: No
  Sender: FDA-Public Use
  Company Number: None

PATIENT
  Age: 30 Year
  Sex: Female
  Weight: 59.24 kg

DRUGS (5)
  1. CAPECITABINE [Suspect]
     Active Substance: CAPECITABINE
     Indication: Breast cancer female
     Dosage: 1500MG TWICE DAILY ORAL
     Route: 048
     Dates: start: 202207
  2. ALBUTEROL [Concomitant]
     Active Substance: ALBUTEROL
  3. FAMOTIDINE [Concomitant]
     Active Substance: FAMOTIDINE
  4. ONDANSETRON [Concomitant]
     Active Substance: ONDANSETRON
  5. PROMETHAZINE [Concomitant]
     Active Substance: PROMETHAZINE HYDROCHLORIDE

REACTIONS (1)
  - Disease progression [None]
